FAERS Safety Report 25106978 (Version 1)
Quarter: 2025Q1

REPORT INFORMATION
  Report Type: Spontaneous
  Country: TH (occurrence: TH)
  Receive Date: 20250321
  Receipt Date: 20250321
  Transmission Date: 20250408
  Serious: Yes (Other)
  Sender: GUERBET
  Company Number: TH-GUERBETG-TH-20250024

PATIENT
  Age: 26 Year
  Sex: Female

DRUGS (1)
  1. OPTIRAY 350 [Suspect]
     Active Substance: IOVERSOL
     Indication: Computerised tomogram abdomen
     Route: 042
     Dates: start: 20250212, end: 20250212

REACTIONS (4)
  - Urticaria [Recovered/Resolved]
  - Productive cough [Recovered/Resolved]
  - Sneezing [Recovered/Resolved]
  - Nasal congestion [Recovered/Resolved]

NARRATIVE: CASE EVENT DATE: 20250212
